FAERS Safety Report 4620466-1 (Version None)
Quarter: 2005Q1

REPORT INFORMATION
  Report Type: 
  Country: None (occurrence: None)
  Receive Date: 20050324
  Receipt Date: 20050314
  Transmission Date: 20050727
  Serious: Yes (Other)
  Sender: FDA-Public Use
  Company Number: HQWYE101314MAR05

PATIENT
  Age: 84 Year
  Sex: Female

DRUGS (1)
  1. CORDARONE [Suspect]

REACTIONS (3)
  - ATRIAL FIBRILLATION [None]
  - DEPRESSION [None]
  - DISEASE RECURRENCE [None]
